FAERS Safety Report 12618935 (Version 3)
Quarter: 2016Q4

REPORT INFORMATION
  Report Type: Report from Study
  Country: BR (occurrence: BR)
  Receive Date: 20160803
  Receipt Date: 20161021
  Transmission Date: 20170207
  Serious: Yes (Other)
  Sender: FDA-Public Use
  Company Number: BR-JNJFOC-20160512442

PATIENT
  Age: 52 Year
  Sex: Female
  Weight: 66 kg

DRUGS (9)
  1. SOTALOL. [Concomitant]
     Active Substance: SOTALOL
     Route: 065
  2. TECNOMET [Concomitant]
     Active Substance: METHOTREXATE
     Route: 065
  3. VENLAFAXINE [Concomitant]
     Active Substance: VENLAFAXINE HYDROCHLORIDE
     Route: 065
  4. CORTISONE [Concomitant]
     Active Substance: CORTISONE\HYDROCORTISONE
     Route: 065
  5. STELARA [Suspect]
     Active Substance: USTEKINUMAB
     Indication: PSORIASIS
     Route: 058
     Dates: end: 20160524
  6. SIMVASTATIN. [Concomitant]
     Active Substance: SIMVASTATIN
     Route: 065
  7. STELARA [Suspect]
     Active Substance: USTEKINUMAB
     Indication: PSORIASIS
     Route: 058
     Dates: start: 20150519, end: 20151202
  8. LIPANON [Concomitant]
     Active Substance: FENOFIBRATE
     Route: 065
  9. LOSARTAN. [Concomitant]
     Active Substance: LOSARTAN
     Route: 065

REACTIONS (8)
  - Arthritis [Unknown]
  - Gastrointestinal inflammation [Unknown]
  - Urinary tract infection [Recovered/Resolved]
  - Sinusitis [Unknown]
  - Erythema [Unknown]
  - Gastrointestinal infection [Recovered/Resolved]
  - Malaise [Unknown]
  - Pharyngitis [Unknown]

NARRATIVE: CASE EVENT DATE: 2016
